FAERS Safety Report 15407006 (Version 1)
Quarter: 2018Q3

REPORT INFORMATION
  Report Type: Spontaneous
  Country: US (occurrence: US)
  Receive Date: 20180919
  Receipt Date: 20180919
  Transmission Date: 20181010
  Serious: No
  Sender: FDA-Public Use
  Company Number: None

PATIENT
  Age: 78 Year
  Sex: Female
  Weight: 110.25 kg

DRUGS (22)
  1. LIDOCAINE. [Concomitant]
     Active Substance: LIDOCAINE
  2. LYRICA [Concomitant]
     Active Substance: PREGABALIN
  3. MONTELUKAST [Concomitant]
     Active Substance: MONTELUKAST SODIUM
  4. DULOXETINE. [Concomitant]
     Active Substance: DULOXETINE
  5. ONDANSETRON [Concomitant]
     Active Substance: ONDANSETRON
  6. DIAZEPAM. [Concomitant]
     Active Substance: DIAZEPAM
  7. BUDESONIDE. [Concomitant]
     Active Substance: BUDESONIDE
  8. COLLAGENASE [Concomitant]
     Active Substance: COLLAGENASE CLOSTRIDIUM HISTOLYTICUM
  9. BROVANA [Concomitant]
     Active Substance: ARFORMOTEROL TARTRATE
  10. FAMOTIDINE. [Concomitant]
     Active Substance: FAMOTIDINE
  11. PERCOCET [Concomitant]
     Active Substance: ACETAMINOPHEN\OXYCODONE HYDROCHLORIDE
  12. FEXOFENADINE [Concomitant]
     Active Substance: FEXOFENADINE\FEXOFENADINE HYDROCHLORIDE
  13. GABAPENTIN. [Concomitant]
     Active Substance: GABAPENTIN
  14. LABETALOL [Concomitant]
     Active Substance: LABETALOL\LABETALOL HYDROCHLORIDE
  15. MECLIZINE [Concomitant]
     Active Substance: MECLIZINE HYDROCHLORIDE
  16. VERZENIO [Suspect]
     Active Substance: ABEMACICLIB
     Indication: BREAST CANCER
     Route: 048
     Dates: start: 20180530
  17. AMLODIPINE [Concomitant]
     Active Substance: AMLODIPINE BESYLATE
  18. DONEPEZIL. [Concomitant]
     Active Substance: DONEPEZIL
  19. VICOPROFEN [Concomitant]
     Active Substance: HYDROCODONE BITARTRATE\IBUPROFEN
  20. LEVETRIACETAM [Concomitant]
     Active Substance: LEVETIRACETAM
  21. ALBUTEROL. [Concomitant]
     Active Substance: ALBUTEROL
  22. LOSARTAN. [Concomitant]
     Active Substance: LOSARTAN

REACTIONS (1)
  - Bronchitis [None]

NARRATIVE: CASE EVENT DATE: 20180829
